FAERS Safety Report 10187541 (Version 2)
Quarter: 2015Q2

REPORT INFORMATION
  Report Type: Spontaneous
  Country: US (occurrence: US)
  Receive Date: 20140522
  Receipt Date: 20150604
  Transmission Date: 20150821
  Serious: No
  Sender: FDA-Public Use
  Company Number: US-SANOFI-AVENTIS-2013SA083281

PATIENT
  Age: 75 Year
  Sex: Female

DRUGS (6)
  1. LANTUS SOLOSTAR [Suspect]
     Active Substance: INSULIN GLARGINE
     Indication: TYPE 2 DIABETES MELLITUS
     Dosage: STARTED FROM TWO TO THREE YEARS AGO DOSE:40 UNIT(S)
     Route: 058
     Dates: start: 2011
  2. LANTUS SOLOSTAR [Suspect]
     Active Substance: INSULIN GLARGINE
     Indication: TYPE 2 DIABETES MELLITUS
     Dosage: DOSE:40 UNIT(S)
     Route: 058
  3. LANTUS SOLOSTAR [Suspect]
     Active Substance: INSULIN GLARGINE
     Indication: TYPE 2 DIABETES MELLITUS
     Dosage: DOSE:40 UNIT(S)
     Route: 058
  4. SOLOSTAR [Concomitant]
     Active Substance: DEVICE
     Indication: TYPE 2 DIABETES MELLITUS
     Dosage: STARTED FROM TWO TO THREE YEARS AGO
  5. SOLOSTAR [Concomitant]
     Active Substance: DEVICE
     Indication: TYPE 2 DIABETES MELLITUS
     Dosage: STARTED FROM TWO TO THREE YEARS AGO
  6. LANTUS SOLOSTAR [Suspect]
     Active Substance: INSULIN GLARGINE
     Indication: TYPE 2 DIABETES MELLITUS
     Dosage: STARTED FROM TWO TO THREE YEARS AGO DOSE:40 UNIT(S)
     Route: 058
     Dates: start: 2011

REACTIONS (7)
  - Somnolence [Unknown]
  - Chest pain [Unknown]
  - Pain in extremity [Unknown]
  - Blood glucose increased [Unknown]
  - Vision blurred [Not Recovered/Not Resolved]
  - Injection site pain [Unknown]
  - Drug administration error [Unknown]

NARRATIVE: CASE EVENT DATE: 2011
